FAERS Safety Report 21662511 (Version 5)
Quarter: 2023Q1

REPORT INFORMATION
  Report Type: Spontaneous
  Country: US (occurrence: US)
  Receive Date: 20221130
  Receipt Date: 20230207
  Transmission Date: 20230418
  Serious: No
  Sender: FDA-Public Use
  Company Number: US-PFIZER INC-202201324396

PATIENT
  Age: 12 Year
  Sex: Male
  Weight: 46.72 kg

DRUGS (6)
  1. GENOTROPIN [Suspect]
     Active Substance: SOMATROPIN
     Indication: Muscle tone disorder
     Dosage: EVERY EVENING
     Route: 058
     Dates: start: 201012
  2. GENOTROPIN [Suspect]
     Active Substance: SOMATROPIN
     Indication: Prader-Willi syndrome
  3. SACCHAROMYCES CEREVISIAE [Concomitant]
     Active Substance: SACCHAROMYCES CEREVISIAE
     Dosage: UNK, 1X/DAY
     Route: 048
  4. GUANFACINE [Concomitant]
     Active Substance: GUANFACINE
     Indication: Anxiety
     Dosage: 3 MG (IN THE AFTERNOON)
     Route: 048
  5. SENNA LEAF [Concomitant]
     Active Substance: SENNA LEAF
     Dosage: 8.6 MG (IN THE AFTERNOON)
     Route: 048
  6. VITAMINS NOS [Concomitant]
     Active Substance: VITAMINS
     Dosage: TWO CHEWABLES ONCE A DAY

REACTIONS (5)
  - Incorrect dose administered by device [Unknown]
  - Device issue [Unknown]
  - Device mechanical issue [Unknown]
  - Device breakage [Unknown]
  - Expired device used [Unknown]

NARRATIVE: CASE EVENT DATE: 20211101
